FAERS Safety Report 12185099 (Version 2)
Quarter: 2016Q4

REPORT INFORMATION
  Report Type: Spontaneous
  Country: US (occurrence: US)
  Receive Date: 20160316
  Receipt Date: 20161118
  Transmission Date: 20170207
  Serious: No
  Sender: FDA-Public Use
  Company Number: GXBR2016US000946

PATIENT
  Sex: Female

DRUGS (1)
  1. ALPRAZOLAM TABLETS USP [Suspect]
     Active Substance: ALPRAZOLAM
     Indication: FEELING OF RELAXATION
     Dosage: 0.5 MG (1/2 OF A 1 MG TABLET), UNK
     Route: 048

REACTIONS (1)
  - Drug effect decreased [Not Recovered/Not Resolved]
